FAERS Safety Report 22520890 (Version 1)
Quarter: 2023Q2

REPORT INFORMATION
  Report Type: Spontaneous
  Country: US (occurrence: None)
  Receive Date: 20230602
  Receipt Date: 20230602
  Transmission Date: 20230722
  Serious: Yes (Hospitalization)
  Sender: FDA-Public Use
  Company Number: None

PATIENT
  Sex: Male

DRUGS (1)
  1. LORBRENA [Suspect]
     Active Substance: LORLATINIB
     Indication: Brain neoplasm
     Dosage: FREQUENCY : DAILY;?
     Route: 048

REACTIONS (2)
  - Hallucination [None]
  - Psychotic disorder [None]
